FAERS Safety Report 14959076 (Version 4)
Quarter: 2019Q4

REPORT INFORMATION
  Report Type: Spontaneous
  Country: JP (occurrence: JP)
  Receive Date: 20180531
  Receipt Date: 20191104
  Transmission Date: 20200122
  Serious: Yes (Hospitalization, Disabling)
  Sender: FDA-Public Use
  Company Number: JP-FERRINGPH-2018FE02576

PATIENT

DRUGS (8)
  1. HEPARIN SODIUM. [Concomitant]
     Active Substance: HEPARIN SODIUM
     Indication: PRODUCT USED FOR UNKNOWN INDICATION
     Route: 065
  2. LOW MOLECULAR DEXTRAN [Concomitant]
     Indication: PRODUCT USED FOR UNKNOWN INDICATION
     Route: 065
  3. MENOTROPHIN [Suspect]
     Active Substance: MENOTROPINS
     Indication: INFERTILITY
     Dosage: 150 IU, UNK
     Route: 065
     Dates: start: 20180410, end: 20180418
  4. MENOTROPHIN [Suspect]
     Active Substance: MENOTROPINS
     Indication: OVULATION INDUCTION
  5. WARFARIN                           /00014803/ [Concomitant]
     Active Substance: WARFARIN
     Indication: PRODUCT USED FOR UNKNOWN INDICATION
     Route: 065
  6. DOPAMINE                           /00360702/ [Concomitant]
     Indication: PRODUCT USED FOR UNKNOWN INDICATION
     Route: 065
  7. HCG [Suspect]
     Active Substance: GONADOTROPHIN, CHORIONIC
     Indication: INFERTILITY
     Dosage: 5000 IU, UNK
     Route: 065
     Dates: start: 20180419
  8. HCG [Suspect]
     Active Substance: GONADOTROPHIN, CHORIONIC
     Indication: OVULATION INDUCTION

REACTIONS (2)
  - Cerebral infarction [Recovered/Resolved with Sequelae]
  - Ovarian hyperstimulation syndrome [Recovered/Resolved with Sequelae]

NARRATIVE: CASE EVENT DATE: 20180426
